FAERS Safety Report 12280178 (Version 3)
Quarter: 2016Q2

REPORT INFORMATION
  Report Type: Report from Study
  Country: US (occurrence: US)
  Receive Date: 20160419
  Receipt Date: 20160615
  Transmission Date: 20160815
  Serious: Yes (Other)
  Sender: FDA-Public Use
  Company Number: US-AMGEN-USASL2016047735

PATIENT
  Age: 75 Year
  Sex: Female

DRUGS (1)
  1. ENBREL [Suspect]
     Active Substance: ETANERCEPT
     Indication: RHEUMATOID ARTHRITIS
     Dosage: UNK (ABOUT EVERY 5 DAYS)
     Route: 065
     Dates: start: 201506

REACTIONS (3)
  - Decreased immune responsiveness [Unknown]
  - Inappropriate schedule of drug administration [Unknown]
  - Liver transplant [Unknown]

NARRATIVE: CASE EVENT DATE: 201506
